FAERS Safety Report 4809161-3 (Version None)
Quarter: 2005Q4

REPORT INFORMATION
  Report Type: 
  Country: None (occurrence: None)
  Receive Date: 20051021
  Receipt Date: 20020521
  Transmission Date: 20060501
  Serious: No
  Sender: FDA-Public Use
  Company Number: US_020584728

PATIENT
  Age: 33 Year
  Sex: Male

DRUGS (6)
  1. ZYPREXA [Suspect]
     Indication: SCHIZOPHRENIA
     Dosage: 10 MG/DAY
  2. AKINETON [Concomitant]
  3. LEVOMEPROMAZINE [Concomitant]
  4. VEGETAMIN [Concomitant]
  5. ESTAZOLAM [Concomitant]
  6. RAVONA (PENTOBARBITAL CALCIUM) [Concomitant]

REACTIONS (1)
  - WHITE BLOOD CELL COUNT INCREASED [None]
